FAERS Safety Report 10412446 (Version 1)
Quarter: 2014Q3

REPORT INFORMATION
  Report Type: Spontaneous
  Country: US (occurrence: None)
  Receive Date: 20140825
  Receipt Date: 20140825
  Transmission Date: 20150326
  Serious: Yes (Other)
  Sender: FDA-Public Use
  Company Number: None

PATIENT
  Age: 27 Year
  Sex: Female
  Weight: 58.97 kg

DRUGS (1)
  1. ADDERALL XR [Suspect]
     Active Substance: AMPHETAMINE ASPARTATE\AMPHETAMINE SULFATE\DEXTROAMPHETAMINE SACCHARATE\DEXTROAMPHETAMINE SULFATE
     Indication: ATTENTION DEFICIT/HYPERACTIVITY DISORDER
     Dosage: 2 PILLS ?ONCE DAILY?TAKEN BY MOUTH
     Route: 048
     Dates: start: 20140801, end: 20140824

REACTIONS (10)
  - Self injurious behaviour [None]
  - Product substitution issue [None]
  - Panic attack [None]
  - Anxiety [None]
  - Suicidal ideation [None]
  - Depression [None]
  - Fatigue [None]
  - Restlessness [None]
  - Disturbance in attention [None]
  - Agitation [None]

NARRATIVE: CASE EVENT DATE: 20140824
